FAERS Safety Report 4936745-4 (Version None)
Quarter: 2006Q1

REPORT INFORMATION
  Report Type: 
  Country: None (occurrence: None)
  Receive Date: 20060302
  Receipt Date: 20060217
  Transmission Date: 20060701
  Serious: Yes (Death)
  Sender: FDA-Public Use
  Company Number: 2006019515

PATIENT
  Age: 65 Year
  Sex: Male
  Weight: 74.2 kg

DRUGS (1)
  1. SUTENT [Suspect]
     Indication: RENAL CELL CARCINOMA STAGE UNSPECIFIED
     Dosage: 50 MG (50 MG, CYCLIC INTERVAL: EVERY DAY), ORAL
     Route: 048
     Dates: start: 20060110, end: 20060206

REACTIONS (5)
  - CEREBRAL ISCHAEMIA [None]
  - DRUG TOXICITY [None]
  - HAEMORRHAGIC STROKE [None]
  - SUDDEN DEATH [None]
  - THROMBOTIC STROKE [None]
